FAERS Safety Report 5271161-X (Version None)
Quarter: 2007Q1

REPORT INFORMATION
  Report Type: 
  Country: None (occurrence: None)
  Receive Date: 20070321
  Receipt Date: 20070312
  Transmission Date: 20070707
  Serious: Yes (Death)
  Sender: FDA-Public Use
  Company Number: CH-ROCHE-487148

PATIENT
  Age: 40 Year
  Sex: Female

DRUGS (3)
  1. CLONAZEPAM [Suspect]
     Route: 065
  2. METHADONE HCL [Suspect]
     Route: 065
  3. FLURAZEPAM HCL [Suspect]
     Route: 065

REACTIONS (1)
  - SUDDEN DEATH [None]
